FAERS Safety Report 7159845-X (Version None)
Quarter: 2010Q4

REPORT INFORMATION
  Report Type: 
  Country: None (occurrence: None)
  Receive Date: 20101214
  Receipt Date: 20101005
  Transmission Date: 20110411
  Serious: No
  Sender: FDA-Public Use
  Company Number: US-ASTRAZENECA-2010SE46916

PATIENT
  Age: 14620 Day
  Sex: Male
  Weight: 80.7 kg

DRUGS (1)
  1. CRESTOR [Suspect]
     Route: 048
     Dates: start: 20100921

REACTIONS (4)
  - DYSPNOEA [None]
  - HEADACHE [None]
  - INSOMNIA [None]
  - PARAESTHESIA [None]
